FAERS Safety Report 5734636-2 (Version None)
Quarter: 2008Q2

REPORT INFORMATION
  Report Type: 
  Country: None (occurrence: None)
  Receive Date: 20080512
  Receipt Date: 20080501
  Transmission Date: 20081010
  Serious: Yes (Other)
  Sender: FDA-Public Use
  Company Number: PHHY2008JP03811

PATIENT
  Age: 70 Year
  Sex: Female

DRUGS (3)
  1. SALAGEN [Suspect]
     Indication: DRY MOUTH
     Dosage: 15 MG, TID
     Route: 048
     Dates: start: 20080128, end: 20080220
  2. TS 1 [Concomitant]
     Dosage: 100 MG DAILY
     Dates: start: 20080101, end: 20080211
  3. TS 1 [Concomitant]
     Dosage: 80 MG DAILY
     Dates: start: 20080218, end: 20080317

REACTIONS (3)
  - ANOREXIA [None]
  - BLOOD PRESSURE DECREASED [None]
  - PARENTERAL NUTRITION [None]
